FAERS Safety Report 15202019 (Version 1)
Quarter: 2018Q3

REPORT INFORMATION
  Report Type: Spontaneous
  Country: US (occurrence: US)
  Receive Date: 20180726
  Receipt Date: 20180726
  Transmission Date: 20181010
  Serious: Yes (Death, Other)
  Sender: FDA-Public Use
  Company Number: US-B.I. PHARMACEUTICALS,INC./RIDGEFIELD-2018-BI-037728

PATIENT
  Age: 38 Year
  Sex: Male

DRUGS (20)
  1. PRADAXA [Suspect]
     Active Substance: DABIGATRAN ETEXILATE MESYLATE
     Indication: PULMONARY INFARCTION
  2. APIXABAN [Concomitant]
     Active Substance: APIXABAN
     Indication: PULMONARY EMBOLISM
  3. APIXABAN [Concomitant]
     Active Substance: APIXABAN
     Indication: INTRACARDIAC THROMBUS
  4. ARGATROBAN. [Concomitant]
     Active Substance: ARGATROBAN
     Indication: DEEP VEIN THROMBOSIS
     Route: 065
  5. ACTILYSE [Suspect]
     Active Substance: ALTEPLASE
     Indication: PULMONARY EMBOLISM
  6. PRADAXA [Suspect]
     Active Substance: DABIGATRAN ETEXILATE MESYLATE
     Indication: PULMONARY EMBOLISM
  7. APIXABAN [Concomitant]
     Active Substance: APIXABAN
     Indication: TESTICULAR INFARCTION
  8. ARGATROBAN. [Concomitant]
     Active Substance: ARGATROBAN
     Indication: TESTICULAR INFARCTION
  9. ACTILYSE [Suspect]
     Active Substance: ALTEPLASE
     Indication: DEEP VEIN THROMBOSIS
     Route: 065
  10. PRADAXA [Suspect]
     Active Substance: DABIGATRAN ETEXILATE MESYLATE
     Indication: INTRACARDIAC THROMBUS
  11. PRADAXA [Suspect]
     Active Substance: DABIGATRAN ETEXILATE MESYLATE
     Indication: TESTICULAR INFARCTION
  12. ARGATROBAN. [Concomitant]
     Active Substance: ARGATROBAN
     Indication: PULMONARY EMBOLISM
  13. ARGATROBAN. [Concomitant]
     Active Substance: ARGATROBAN
     Indication: PULMONARY INFARCTION
  14. ACTILYSE [Suspect]
     Active Substance: ALTEPLASE
     Indication: PULMONARY INFARCTION
  15. ACTILYSE [Suspect]
     Active Substance: ALTEPLASE
     Indication: INTRACARDIAC THROMBUS
  16. ACTILYSE [Suspect]
     Active Substance: ALTEPLASE
     Indication: TESTICULAR INFARCTION
  17. PRADAXA [Suspect]
     Active Substance: DABIGATRAN ETEXILATE MESYLATE
     Indication: DEEP VEIN THROMBOSIS
     Route: 065
  18. APIXABAN [Concomitant]
     Active Substance: APIXABAN
     Indication: DEEP VEIN THROMBOSIS
     Route: 065
  19. ARGATROBAN. [Concomitant]
     Active Substance: ARGATROBAN
     Indication: INTRACARDIAC THROMBUS
  20. APIXABAN [Concomitant]
     Active Substance: APIXABAN
     Indication: PULMONARY INFARCTION

REACTIONS (7)
  - Respiratory failure [Fatal]
  - Haemoptysis [Unknown]
  - Epistaxis [Unknown]
  - Hypoxia [Unknown]
  - Pulmonary alveolar haemorrhage [Unknown]
  - Haemorrhagic anaemia [Fatal]
  - Pulseless electrical activity [Fatal]
